FAERS Safety Report 17089139 (Version 1)
Quarter: 2019Q4

REPORT INFORMATION
  Report Type: Spontaneous
  Country: US (occurrence: US)
  Receive Date: 20191128
  Receipt Date: 20191128
  Transmission Date: 20200122
  Serious: No
  Sender: FDA-Public Use
  Company Number: US-SHIRE-US201941166

PATIENT
  Age: 61 Year

DRUGS (1)
  1. GATTEX [Suspect]
     Active Substance: TEDUGLUTIDE\WATER
     Indication: PRODUCT USED FOR UNKNOWN INDICATION
     Dosage: 0.3060 UNIT UNK, 1X/DAY:QD
     Route: 058
     Dates: start: 20190126

REACTIONS (1)
  - Pain [Unknown]

NARRATIVE: CASE EVENT DATE: 20191126
